FAERS Safety Report 16066731 (Version 1)
Quarter: 2019Q1

REPORT INFORMATION
  Report Type: Spontaneous
  Country: US (occurrence: US)
  Receive Date: 20190212
  Receipt Date: 20190212
  Transmission Date: 20190418
  Serious: No
  Sender: FDA-Public Use
  Company Number: None

PATIENT
  Age: 46 Year
  Sex: Female

DRUGS (1)
  1. XOLAIR [Suspect]
     Active Substance: OMALIZUMAB
     Indication: URTICARIA
     Dates: start: 201708

REACTIONS (3)
  - Hypoglycaemia [None]
  - Therapy cessation [None]
  - Anaphylactic reaction [None]

NARRATIVE: CASE EVENT DATE: 20190212
